FAERS Safety Report 6871852-0 (Version None)
Quarter: 2010Q3

REPORT INFORMATION
  Report Type: 
  Country: None (occurrence: None)
  Receive Date: 20100723
  Receipt Date: 20100721
  Transmission Date: 20110219
  Serious: Yes (Hospitalization, Other)
  Sender: FDA-Public Use
  Company Number: US-BRISTOL-MYERS SQUIBB COMPANY-15200108

PATIENT
  Age: 69 Year
  Sex: Male
  Weight: 136 kg

DRUGS (9)
  1. ERBITUX [Suspect]
     Indication: RECTAL CANCER METASTATIC
     Dosage: STARTED DOSE A MONTH OR SO AGO.22JUN2010(630MG)
     Route: 042
     Dates: start: 20100615
  2. IRINOTECAN HCL [Suspect]
     Indication: RECTAL CANCER METASTATIC
  3. NEXIUM [Concomitant]
  4. BLOOD PRESSURE PILL [Concomitant]
  5. ENALAPRIL MALEATE [Concomitant]
  6. LIPITOR [Concomitant]
  7. METFORMIN HCL [Concomitant]
  8. OMEPRAZOLE [Concomitant]
  9. FLOMAX [Concomitant]

REACTIONS (4)
  - DEHYDRATION [None]
  - DIARRHOEA [None]
  - RASH [None]
  - SYNCOPE [None]
